FAERS Safety Report 4616237-2 (Version None)
Quarter: 2005Q1

REPORT INFORMATION
  Report Type: 
  Country: None (occurrence: None)
  Receive Date: 20050321
  Receipt Date: 20050309
  Transmission Date: 20050727
  Serious: Yes (Hospitalization)
  Sender: FDA-Public Use
  Company Number: 2005042900

PATIENT
  Age: 69 Year
  Sex: Female
  Weight: 89.3586 kg

DRUGS (9)
  1. ZANTAC 75 [Suspect]
     Indication: DYSPEPSIA
     Dosage: 1 TABLET QD AC (5PM), ORAL
  2. ATORVASTATIN CALCIUM [Concomitant]
  3. LORAZEPAM [Concomitant]
  4. WARFARIN SODIUM [Concomitant]
  5. DICLOFENAC SODIUM [Concomitant]
  6. TEARS NATURALE (DEXTRAN 70, HYPROMELLOSE) [Concomitant]
  7. REPLENS (CARBOMER, GLYCEROL, PARAFFIN, LIQUID, POLYCARBOPHIL) [Concomitant]
  8. CLINADAMYCIN (CLINDAMYCIN) [Concomitant]
  9. FINACEA [Concomitant]

REACTIONS (2)
  - GASTRIC ULCER [None]
  - HAEMORRHAGE [None]
